FAERS Safety Report 8169359-6 (Version None)
Quarter: 2012Q1

REPORT INFORMATION
  Report Type: 
  Country: None (occurrence: None)
  Receive Date: 20120222
  Receipt Date: 20120208
  Transmission Date: 20120608
  Serious: Yes (Other)
  Sender: FDA-Public Use
  Company Number: AUR-APL-2012-00987

PATIENT
  Age: 80 Year
  Sex: Female

DRUGS (1)
  1. METFORMIN HCL [Suspect]
     Indication: PRODUCT USED FOR UNKNOWN INDICATION
     Dosage: UNKNOWN

REACTIONS (13)
  - ACCIDENTAL POISONING [None]
  - RECTAL HAEMORRHAGE [None]
  - COLITIS ISCHAEMIC [None]
  - HYPOTENSION [None]
  - CONTINUOUS HAEMODIAFILTRATION [None]
  - TACHYPNOEA [None]
  - LIVEDO RETICULARIS [None]
  - PYELONEPHRITIS [None]
  - LACTIC ACIDOSIS [None]
  - HYPERKALAEMIA [None]
  - SEPTIC SHOCK [None]
  - LOBAR PNEUMONIA [None]
  - RENAL FAILURE [None]
